FAERS Safety Report 7904215-7 (Version None)
Quarter: 2011Q4

REPORT INFORMATION
  Report Type: 
  Country: None (occurrence: None)
  Receive Date: 20111109
  Receipt Date: 20111103
  Transmission Date: 20120403
  Serious: Yes (Hospitalization)
  Sender: FDA-Public Use
  Company Number: IT-B.I. PHARMACEUTICALS,INC./RIDGEFIELD-2011-IT-00273IT

PATIENT
  Sex: Male

DRUGS (5)
  1. LASIX [Concomitant]
  2. SEQUACOR [Concomitant]
  3. CATAPRES-TTS-1 [Suspect]
     Indication: HYPERTENSION
     Route: 062
     Dates: start: 20110105, end: 20110624
  4. FOSINOPRIL SODIUM AND HYDROCHLOROTHIAZIDE [Suspect]
     Indication: HYPERTENSION
     Dosage: STRENGHT: 20 MG+12.5 MG
     Route: 048
     Dates: start: 20110105, end: 20110624
  5. ALLOPURINOL [Concomitant]

REACTIONS (1)
  - HYPERKALAEMIA [None]
